FAERS Safety Report 8170703-4 (Version None)
Quarter: 2012Q1

REPORT INFORMATION
  Report Type: 
  Country: None (occurrence: None)
  Receive Date: 20120228
  Receipt Date: 20120221
  Transmission Date: 20120608
  Serious: Yes (Death)
  Sender: FDA-Public Use
  Company Number: US-ELI_LILLY_AND_COMPANY-US201201009192

PATIENT
  Sex: Male
  Weight: 70.748 kg

DRUGS (9)
  1. K-TAB [Concomitant]
  2. PROSCAR [Concomitant]
  3. ADCIRCA [Suspect]
     Indication: PULMONARY HYPERTENSION
     Dosage: 20 MG, BID
     Dates: start: 20110101
  4. LASIX [Concomitant]
  5. ASPIRIN [Concomitant]
  6. COREG [Concomitant]
  7. METOLAZONE [Concomitant]
  8. TERAZOSIN HCL [Concomitant]
  9. FERROUS SULFATE TAB [Concomitant]

REACTIONS (3)
  - RENAL FAILURE [None]
  - CORONARY ARTERY DISEASE [None]
  - CARDIAC FAILURE CONGESTIVE [None]
